FAERS Safety Report 9125353 (Version 2)
Quarter: 2013Q2

REPORT INFORMATION
  Report Type: Spontaneous
  Country: US (occurrence: US)
  Receive Date: 20130117
  Receipt Date: 20130423
  Transmission Date: 20140414
  Serious: Yes (Hospitalization)
  Sender: FDA-Public Use
  Company Number: US-BRISTOL-MYERS SQUIBB COMPANY-16999427

PATIENT
  Age: 78 Year
  Sex: Female
  Weight: 71.2 kg

DRUGS (4)
  1. YERVOY [Suspect]
     Indication: METASTATIC MALIGNANT MELANOMA
     Dosage: TOTAL DOSE: 250MG?4 DOSES?MAINTANENCE:EVERY 12 WEEKS?LAST DOSE: 05JUN12
     Route: 042
     Dates: start: 20110907
  2. LEVOTHYROXINE [Concomitant]
  3. SPIRONOLACTONE [Concomitant]
  4. HYDROCORTISONE [Concomitant]

REACTIONS (1)
  - Vasculitis [Recovered/Resolved with Sequelae]
